FAERS Safety Report 6123621-7 (Version None)
Quarter: 2009Q1

REPORT INFORMATION
  Report Type: 
  Country: None (occurrence: None)
  Receive Date: 20090319
  Receipt Date: 20090211
  Transmission Date: 20090719
  Serious: Yes (Death, Life-Threatening, Hospitalization, Other)
  Sender: FDA-Public Use
  Company Number: GB-JNJFOC-20080201512

PATIENT
  Sex: Female
  Weight: 40 kg

DRUGS (10)
  1. REMICADE [Suspect]
     Route: 042
  2. REMICADE [Suspect]
     Indication: RHEUMATOID ARTHRITIS
     Route: 042
  3. TACROLIMUS [Suspect]
     Indication: DRUG USE FOR UNKNOWN INDICATION
  4. VANCOMYCIN [Suspect]
     Indication: DRUG USE FOR UNKNOWN INDICATION
     Route: 042
  5. PREDNISOLONE [Concomitant]
     Indication: EYE DISORDER
  6. ATENOLOL [Concomitant]
  7. VITAMIN B-12 [Concomitant]
     Dosage: 3 INJECTIONS MONTHLY
     Route: 050
  8. DIDRONEL [Concomitant]
  9. FOLIC ACID [Concomitant]
  10. ARTIFICIAL TEARS [Concomitant]

REACTIONS (7)
  - BURSITIS INFECTIVE [None]
  - CEREBRAL INFARCTION [None]
  - CHEST PAIN [None]
  - DEHYDRATION [None]
  - EYE OPERATION [None]
  - PULMONARY OEDEMA [None]
  - RENAL FAILURE ACUTE [None]
